FAERS Safety Report 9968363 (Version 1)
Quarter: 2014Q1

REPORT INFORMATION
  Report Type: Spontaneous
  Country: US (occurrence: US)
  Receive Date: 20140306
  Receipt Date: 20140306
  Transmission Date: 20141002
  Serious: No
  Sender: FDA-Public Use
  Company Number: US-ABBVIE-13P-163-1145761-00

PATIENT
  Sex: Female
  Weight: 57.2 kg

DRUGS (15)
  1. HUMIRA [Suspect]
     Indication: RHEUMATOID ARTHRITIS
     Route: 058
     Dates: start: 201011
  2. HUMIRA [Suspect]
     Indication: CROHN^S DISEASE
  3. METHOTREXATE [Suspect]
     Indication: RHEUMATOID ARTHRITIS
  4. METHOTREXATE [Suspect]
     Dates: start: 2012
  5. VITAMIN C [Concomitant]
     Indication: PRODUCT USED FOR UNKNOWN INDICATION
  6. ZINC [Concomitant]
     Indication: PRODUCT USED FOR UNKNOWN INDICATION
  7. IRON [Concomitant]
     Indication: PRODUCT USED FOR UNKNOWN INDICATION
  8. PROZAC [Concomitant]
     Indication: PRODUCT USED FOR UNKNOWN INDICATION
  9. PENTASA [Concomitant]
     Indication: PRODUCT USED FOR UNKNOWN INDICATION
  10. VERAMYST [Concomitant]
     Indication: PRODUCT USED FOR UNKNOWN INDICATION
  11. PROAIR [Concomitant]
     Indication: PRODUCT USED FOR UNKNOWN INDICATION
  12. ALLEGRA [Concomitant]
     Indication: PRODUCT USED FOR UNKNOWN INDICATION
  13. MULTI-DAILY VITAMIN [Concomitant]
     Indication: PRODUCT USED FOR UNKNOWN INDICATION
  14. UNKNOWN MEDICATION [Concomitant]
     Indication: PRODUCT USED FOR UNKNOWN INDICATION
     Route: 047
  15. ZIANA [Concomitant]
     Indication: PRODUCT USED FOR UNKNOWN INDICATION

REACTIONS (7)
  - Decreased appetite [Recovering/Resolving]
  - Diarrhoea [Recovering/Resolving]
  - Abdominal pain [Recovering/Resolving]
  - Pain [Recovering/Resolving]
  - Gastrointestinal disorder [Recovering/Resolving]
  - Abdominal distension [Recovering/Resolving]
  - Rheumatoid arthritis [Unknown]
